FAERS Safety Report 18804652 (Version 4)
Quarter: 2025Q1

REPORT INFORMATION
  Report Type: Spontaneous
  Country: US (occurrence: US)
  Receive Date: 20210129
  Receipt Date: 20250227
  Transmission Date: 20250408
  Serious: Yes (Other)
  Sender: UCB
  Company Number: US-UCBSA-2020032739

PATIENT
  Sex: Female
  Weight: 61 kg

DRUGS (15)
  1. KEPPRA [Suspect]
     Active Substance: LEVETIRACETAM
     Indication: Seizure
     Dosage: KEPPRA 500MG IN MORNING AND 750MG AT NIGHT
     Route: 048
     Dates: start: 20170724, end: 2018
  2. KEPPRA [Suspect]
     Active Substance: LEVETIRACETAM
     Dosage: KEPPRA 500MG IN MORNING AND 750MG AT NIGHT
     Route: 048
     Dates: end: 20180307
  3. AMIFAMPRIDINE [Suspect]
     Active Substance: AMIFAMPRIDINE
     Indication: Myasthenic syndrome
     Dosage: 20 MILLIGRAM, 3X/DAY (TID)
     Dates: start: 20170411
  4. FIRDAPSE [Concomitant]
     Active Substance: AMIFAMPRIDINE PHOSPHATE
     Indication: Myasthenic syndrome
     Dosage: 10 MILLIGRAM, 6X/DAY
  5. FIRDAPSE [Concomitant]
     Active Substance: AMIFAMPRIDINE PHOSPHATE
     Dosage: 15 MG AT 5:00PM AND 5 MG AT 1:00AM ALONG WITH 10MG 4X/DAY  (5:00AM, 9:00AM, 1:00PM, AND 9:00PM).
     Dates: start: 2019
  6. ASPIRIN [Concomitant]
     Active Substance: ASPIRIN
     Indication: Product used for unknown indication
  7. LOMOTIL [Concomitant]
     Active Substance: ATROPINE SULFATE\DIPHENOXYLATE HYDROCHLORIDE
     Indication: Product used for unknown indication
  8. AZATHIOPRINE [Concomitant]
     Active Substance: AZATHIOPRINE
     Indication: Product used for unknown indication
     Dosage: 50 MILLIGRAM, ONCE DAILY (QD)
  9. VITAMIN D3 [Concomitant]
     Active Substance: CHOLECALCIFEROL
     Indication: Product used for unknown indication
     Dosage: UNK, ONCE DAILY (QD)
  10. CYANOCOBALAMIN [Concomitant]
     Active Substance: CYANOCOBALAMIN
     Indication: Product used for unknown indication
     Dosage: UNK, WEEKLY (QW)
  11. DILTIAZEM [Concomitant]
     Active Substance: DILTIAZEM
     Indication: Product used for unknown indication
     Dosage: 180 MILLIGRAM, ONCE DAILY (QD)
  12. FUROSEMIDE [Concomitant]
     Active Substance: FUROSEMIDE
     Indication: Product used for unknown indication
     Dosage: 20 MILLIGRAM, EV 2 DAYS (QOD)
  13. METOPROLOL SUCCINATE [Concomitant]
     Active Substance: METOPROLOL SUCCINATE
     Indication: Product used for unknown indication
     Dosage: 50 MILLIGRAM, ONCE DAILY (QD)
  14. PYRIDOSTIGMINE [Concomitant]
     Active Substance: PYRIDOSTIGMINE
     Indication: Product used for unknown indication
     Dosage: 60 MILLIGRAM, 3X/DAY (TID)
  15. ONDANSETRON [Concomitant]
     Active Substance: ONDANSETRON
     Indication: Product used for unknown indication

REACTIONS (3)
  - Seizure [Recovered/Resolved]
  - Product dose omission issue [Unknown]
  - Product use issue [Unknown]

NARRATIVE: CASE EVENT DATE: 20180101
